FAERS Safety Report 6845809-X (Version None)
Quarter: 2010Q3

REPORT INFORMATION
  Report Type: 
  Country: None (occurrence: None)
  Receive Date: 20100713
  Receipt Date: 20100628
  Transmission Date: 20110219
  Serious: Yes (Other)
  Sender: FDA-Public Use
  Company Number: RB-08903-2010

PATIENT
  Age: 58 Year
  Sex: Female

DRUGS (3)
  1. SUBOXONE [Suspect]
     Indication: PRODUCT USED FOR UNKNOWN INDICATION
  2. SUBUTEX [Suspect]
     Indication: DRUG DEPENDENCE
     Dosage: (3 MG BID SUBLINGUAL)
     Route: 060
     Dates: start: 20100101
  3. KLONOPIN [Concomitant]

REACTIONS (28)
  - ABNORMAL SLEEP-RELATED EVENT [None]
  - ACTIVITIES OF DAILY LIVING IMPAIRED [None]
  - ARTHROPOD BITE [None]
  - BACK PAIN [None]
  - CARPAL TUNNEL SYNDROME [None]
  - CELLULITIS [None]
  - CONDITION AGGRAVATED [None]
  - DECREASED APPETITE [None]
  - DIARRHOEA [None]
  - DRUG WITHDRAWAL SYNDROME [None]
  - ERYTHEMA [None]
  - FATIGUE [None]
  - HYPERSENSITIVITY [None]
  - INSOMNIA [None]
  - LACERATION [None]
  - MANIA [None]
  - MIGRAINE [None]
  - MUSCLE SPASMS [None]
  - ONYCHOCLASIS [None]
  - PYREXIA [None]
  - SCAB [None]
  - TINNITUS [None]
  - TONGUE DISCOLOURATION [None]
  - URINARY TRACT INFECTION [None]
  - UTERINE CYST [None]
  - VERTIGO [None]
  - VISUAL ACUITY REDUCED [None]
  - VOMITING [None]
